FAERS Safety Report 18939522 (Version 2)
Quarter: 2021Q1

REPORT INFORMATION
  Report Type: Spontaneous
  Country: CH (occurrence: CH)
  Receive Date: 20210224
  Receipt Date: 20210325
  Transmission Date: 20210420
  Serious: Yes (Other)
  Sender: FDA-Public Use
  Company Number: CH-ASTRAZENECA-2021A072579

PATIENT
  Age: 770 Month
  Sex: Male

DRUGS (6)
  1. CIALIS [Concomitant]
     Active Substance: TADALAFIL
     Indication: BENIGN PROSTATIC HYPERPLASIA
  2. CANDESARTAN. [Concomitant]
     Active Substance: CANDESARTAN
  3. CRESTASTATIN [Suspect]
     Active Substance: ROSUVASTATIN CALCIUM
     Indication: BLOOD CHOLESTEROL INCREASED
     Dosage: 10.0MG UNKNOWN
     Route: 048
     Dates: start: 202102
  4. CRESTOR [Suspect]
     Active Substance: ROSUVASTATIN CALCIUM
     Route: 048
     Dates: start: 2008
  5. ANTRA MUPS [Concomitant]
     Active Substance: OMEPRAZOLE MAGNESIUM
     Indication: BARRETT^S OESOPHAGUS
  6. ASPIRIN CARDIO [Concomitant]
     Active Substance: ASPIRIN

REACTIONS (7)
  - Gynaecomastia [Unknown]
  - Angina unstable [Unknown]
  - Barrett^s oesophagus [Unknown]
  - Benign prostatic hyperplasia [Unknown]
  - Product taste abnormal [Unknown]
  - Blood testosterone decreased [Unknown]
  - Myocardial infarction [Unknown]

NARRATIVE: CASE EVENT DATE: 201312
